FAERS Safety Report 11475577 (Version 1)
Quarter: 2015Q3

REPORT INFORMATION
  Report Type: Spontaneous
  Country: US (occurrence: US)
  Receive Date: 20150909
  Receipt Date: 20150909
  Transmission Date: 20151125
  Serious: No
  Sender: FDA-Public Use
  Company Number: US-ACTELION PHARMACEUTICALS US, INC.-A-US2015-111044

PATIENT
  Age: 63 Year
  Sex: Female

DRUGS (7)
  1. MULTIVITAMIN [Concomitant]
     Active Substance: VITAMINS
     Dosage: UNK
     Dates: start: 20141224
  2. COCONUT OIL [Concomitant]
     Active Substance: COCONUT OIL
     Dosage: UNK
  3. VALCHLOR [Suspect]
     Active Substance: MECHLORETHAMINE
     Indication: MYCOSIS FUNGOIDES
     Dosage: QD
     Route: 061
     Dates: start: 20141223
  4. ALOE VERA [Concomitant]
     Active Substance: ALOE VERA LEAF
     Dosage: UNK
     Dates: start: 20141224
  5. VITAMIN D [Concomitant]
     Active Substance: CHOLECALCIFEROL
     Dosage: UNK
     Dates: start: 20141224
  6. DIGESTIVE ENZYME [Concomitant]
     Active Substance: UNSPECIFIED INGREDIENT
     Dosage: UNK
     Dates: start: 20141224
  7. PERPHENAZINE. [Concomitant]
     Active Substance: PERPHENAZINE
     Dosage: UNK
     Dates: start: 20141224

REACTIONS (7)
  - Inflammation [Recovered/Resolved]
  - Rash [Recovered/Resolved]
  - Application site pain [Unknown]
  - Application site irritation [Unknown]
  - Drug administration error [Recovered/Resolved]
  - Dry skin [Recovering/Resolving]
  - Pruritus [Recovering/Resolving]

NARRATIVE: CASE EVENT DATE: 20150104
